FAERS Safety Report 19773735 (Version 1)
Quarter: 2021Q3

REPORT INFORMATION
  Report Type: Spontaneous
  Country: US (occurrence: US)
  Receive Date: 20210901
  Receipt Date: 20210901
  Transmission Date: 20211014
  Serious: No
  Sender: FDA-Public Use
  Company Number: NVSC2021US195968

PATIENT
  Age: 74 Year
  Sex: Female

DRUGS (1)
  1. MEKINIST [Suspect]
     Active Substance: TRAMETINIB DIMETHYL SULFOXIDE
     Indication: MALIGNANT PERITONEAL NEOPLASM
     Dosage: 2 MG, QD
     Route: 048
     Dates: start: 20210808, end: 20210811

REACTIONS (9)
  - Asthenia [Unknown]
  - Loss of personal independence in daily activities [Unknown]
  - Orthostatic hypotension [Unknown]
  - Rash [Unknown]
  - Palpitations [Unknown]
  - Dysstasia [Unknown]
  - Gait disturbance [Unknown]
  - Heart rate increased [Unknown]
  - Fatigue [Unknown]

NARRATIVE: CASE EVENT DATE: 202108
